FAERS Safety Report 21540253 (Version 2)
Quarter: 2022Q4

REPORT INFORMATION
  Report Type: Other
  Country: JP (occurrence: None)
  Receive Date: 20221102
  Receipt Date: 20221118
  Transmission Date: 20230112
  Serious: Yes (Death, Other)
  Sender: FDA-Public Use
  Company Number: JP-ROCHE-3210690

PATIENT
  Age: 61 Year
  Sex: Male

DRUGS (3)
  1. RITUXIMAB [Suspect]
     Active Substance: RITUXIMAB
     Indication: Diffuse large B-cell lymphoma
     Route: 041
  2. CYCLOSPORINE [Concomitant]
     Active Substance: CYCLOSPORINE
  3. PREDNISOLONE [Concomitant]
     Active Substance: PREDNISOLONE

REACTIONS (4)
  - Multiple organ dysfunction syndrome [Fatal]
  - Bacterial infection [Fatal]
  - Pancytopenia [Unknown]
  - COVID-19 [Unknown]
